FAERS Safety Report 16591529 (Version 9)
Quarter: 2019Q4

REPORT INFORMATION
  Report Type: Spontaneous
  Country: FI (occurrence: FI)
  Receive Date: 20190718
  Receipt Date: 20191209
  Transmission Date: 20200122
  Serious: Yes (Other)
  Sender: FDA-Public Use
  Company Number: FI-PFIZER INC-2019307864

PATIENT
  Age: 80 Year
  Sex: Female

DRUGS (6)
  1. PRIMASPAN [Suspect]
     Active Substance: ASPIRIN
     Dosage: 1 DF, 1X/DAY (IN THE MORNING)
     Route: 048
     Dates: start: 2013
  2. TREXAN [Suspect]
     Active Substance: METHOTREXATE SODIUM
     Indication: RHEUMATOID ARTHRITIS
     Dosage: 5 DF, WEEKLY
     Route: 048
     Dates: start: 2001
  3. DIUREX MITE [Interacting]
     Active Substance: AMILORIDE HYDROCHLORIDE\HYDROCHLOROTHIAZIDE
     Indication: CARDIAC DISORDER
     Dosage: 1 DF, 1X/DAY
     Route: 048
     Dates: start: 20190410, end: 201904
  4. CARDACE (RAMIPRIL) [Interacting]
     Active Substance: RAMIPRIL
     Dosage: UNK
  5. CARDACE (RAMIPRIL) [Interacting]
     Active Substance: RAMIPRIL
     Dosage: 1 DF, 1X/DAY
     Route: 065
  6. OXIKLORIN [Suspect]
     Active Substance: HYDROXYCHLOROQUINE SULFATE
     Indication: RHEUMATOID ARTHRITIS
     Dosage: 1 DF, 1X/DAY
     Route: 048
     Dates: start: 2001

REACTIONS (8)
  - Dizziness [Recovered/Resolved]
  - Cerebral infarction [Unknown]
  - Drug interaction [Unknown]
  - Aortic valve stenosis [Unknown]
  - Rheumatoid arthritis [Recovered/Resolved]
  - Labelled drug-drug interaction medication error [Unknown]
  - Blood pressure decreased [Recovered/Resolved]
  - Pain in extremity [Recovered/Resolved]

NARRATIVE: CASE EVENT DATE: 20190410
